FAERS Safety Report 10380309 (Version 1)
Quarter: 2014Q3

REPORT INFORMATION
  Report Type: Spontaneous
  Country: US (occurrence: None)
  Receive Date: 20140812
  Receipt Date: 20140812
  Transmission Date: 20150326
  Serious: Yes (Other)
  Sender: FDA-Public Use
  Company Number: None

PATIENT
  Age: 54 Year
  Sex: Female
  Weight: 57.61 kg

DRUGS (1)
  1. FLONASE [Suspect]
     Active Substance: FLUTICASONE PROPIONATE
     Indication: MULTIPLE ALLERGIES
     Dosage: ONCE PER DAY  ONCE DAILY SPRAY INTO NOSE
     Route: 045
     Dates: start: 20130521, end: 20140808

REACTIONS (5)
  - Fatigue [None]
  - Vision blurred [None]
  - Cataract [None]
  - Visual acuity reduced [None]
  - Blood glucose decreased [None]

NARRATIVE: CASE EVENT DATE: 20140808
